FAERS Safety Report 6880440-1 (Version None)
Quarter: 2010Q3

REPORT INFORMATION
  Report Type: 
  Country: None (occurrence: None)
  Receive Date: 20100727
  Receipt Date: 20100706
  Transmission Date: 20110219
  Serious: Yes (Hospitalization)
  Sender: FDA-Public Use
  Company Number: A0835282A

PATIENT
  Age: 47 Year
  Sex: Female
  Weight: 68.2 kg

DRUGS (1)
  1. AVANDIA [Suspect]
     Indication: DIABETES MELLITUS
     Dosage: 8MG PER DAY
     Route: 048
     Dates: start: 20010401, end: 20090101

REACTIONS (8)
  - ANGINA PECTORIS [None]
  - ATOPY [None]
  - CEREBROVASCULAR ACCIDENT [None]
  - FRACTURE [None]
  - NON-CARDIAC CHEST PAIN [None]
  - PAIN [None]
  - STAPHYLOCOCCAL INFECTION [None]
  - WOUND INFECTION [None]
